FAERS Safety Report 5857778-X (Version None)
Quarter: 2008Q3

REPORT INFORMATION
  Report Type: 
  Country: None (occurrence: None)
  Receive Date: 20080818
  Receipt Date: 20080605
  Transmission Date: 20090109
  Serious: No
  Sender: FDA-Public Use
  Company Number: WAES 0806USA01022

PATIENT
  Age: 54 Year
  Sex: Male

DRUGS (7)
  1. JANUVIA [Suspect]
     Indication: TYPE 2 DIABETES MELLITUS
     Dosage: 100 MG/DAILY/PO ; PO
     Route: 048
     Dates: start: 20071201, end: 20080516
  2. JANUVIA [Suspect]
     Indication: TYPE 2 DIABETES MELLITUS
     Dosage: 100 MG/DAILY/PO ; PO
     Route: 048
     Dates: start: 20080101
  3. ALLEGRA D 24 HOUR [Concomitant]
  4. COREG [Concomitant]
  5. CRESTOR [Concomitant]
  6. NEXIUM [Concomitant]
  7. HYDROCHLOROTHIAZIDE [Concomitant]

REACTIONS (1)
  - DRY MOUTH [None]
